FAERS Safety Report 8222954-8 (Version None)
Quarter: 2012Q1

REPORT INFORMATION
  Report Type: 
  Country: None (occurrence: None)
  Receive Date: 20120320
  Receipt Date: 20120314
  Transmission Date: 20120608
  Serious: Yes (Hospitalization, Other)
  Sender: FDA-Public Use
  Company Number: PHHY2012DE018275

PATIENT
  Sex: Female

DRUGS (1)
  1. GILENYA [Suspect]
     Indication: MULTIPLE SCLEROSIS
     Dosage: 0.5 MG, QD
     Route: 048
     Dates: start: 20120216, end: 20120218

REACTIONS (5)
  - ELECTROCARDIOGRAM T WAVE INVERSION [None]
  - ATRIOVENTRICULAR BLOCK SECOND DEGREE [None]
  - DYSPNOEA [None]
  - BRADYCARDIA [None]
  - FATIGUE [None]
